FAERS Safety Report 4415118-7 (Version None)
Quarter: 2004Q3

REPORT INFORMATION
  Report Type: 
  Country: None (occurrence: None)
  Receive Date: 20040802
  Receipt Date: 20040714
  Transmission Date: 20050211
  Serious: Yes (Hospitalization)
  Sender: FDA-Public Use
  Company Number: CIO04016718

PATIENT
  Age: 72 Year
  Sex: Female
  Weight: 112 kg

DRUGS (2)
  1. METAMUCIL-2 [Suspect]
     Dosage: 1 CAPSUL, 1 ONLY FOR 1 DAY, ORAL
     Route: 048
     Dates: start: 20040514, end: 20040514
  2. VICODIN [Concomitant]

REACTIONS (3)
  - BLISTER [None]
  - CELLULITIS [None]
  - RASH [None]
